FAERS Safety Report 8445338-6 (Version None)
Quarter: 2012Q2

REPORT INFORMATION
  Report Type: 
  Country: None (occurrence: None)
  Receive Date: 20120618
  Receipt Date: 20120611
  Transmission Date: 20120825
  Serious: Yes (Other)
  Sender: FDA-Public Use
  Company Number: US-UCBSA-059500

PATIENT
  Age: 40 Year
  Sex: Female
  Weight: 63.9 kg

DRUGS (4)
  1. ALPRAZOLAM [Concomitant]
     Route: 048
  2. ASACOL [Concomitant]
     Indication: CROHN'S DISEASE
     Dosage: 4 TABLETS
     Route: 048
  3. PAXIL [Concomitant]
     Route: 048
  4. CIMZIA [Suspect]
     Indication: CROHN'S DISEASE
     Route: 058
     Dates: end: 20120601

REACTIONS (3)
  - RASH GENERALISED [None]
  - PRURITUS [None]
  - RASH PRURITIC [None]
